FAERS Safety Report 8229448-4 (Version None)
Quarter: 2012Q1

REPORT INFORMATION
  Report Type: 
  Country: None (occurrence: None)
  Receive Date: 20120322
  Receipt Date: 20120314
  Transmission Date: 20120608
  Serious: Yes (Hospitalization)
  Sender: FDA-Public Use
  Company Number: AT-ROCHE-799584

PATIENT
  Sex: Male
  Weight: 110 kg

DRUGS (2)
  1. COPEGUS [Suspect]
     Indication: HEPATITIS C
     Dosage: LAST DOSE PRIOR TO SAE: 26 AUG 2011, FREQ: 3-0-3, PERMANENTLY DISCONTINUED
     Route: 048
     Dates: start: 20100910, end: 20110829
  2. PEGINTERFERON ALFA-2A [Suspect]
     Indication: HEPATITIS C
     Dosage: LAST DOSE PRIOR TO SAE: 26 AUG 2011, PERMANENTLY DISCONTINUED
     Route: 058
     Dates: start: 20100910, end: 20110829

REACTIONS (1)
  - RENAL FAILURE [None]
